FAERS Safety Report 14615699 (Version 1)
Quarter: 2018Q1

REPORT INFORMATION
  Report Type: Spontaneous
  Country: US (occurrence: US)
  Receive Date: 20180309
  Receipt Date: 20180309
  Transmission Date: 20180509
  Serious: Yes (Life-Threatening, Hospitalization, Other)
  Sender: FDA-Public Use
  Company Number: US-ABBVIE-18K-163-2281783-00

PATIENT
  Age: 27 Year
  Sex: Male
  Weight: 60.84 kg

DRUGS (2)
  1. HMF FORTE [Concomitant]
     Indication: PRODUCT USED FOR UNKNOWN INDICATION
  2. HUMIRA [Suspect]
     Active Substance: ADALIMUMAB
     Indication: CROHN^S DISEASE
     Route: 058
     Dates: start: 201709, end: 20180129

REACTIONS (15)
  - Haemoglobin decreased [Recovering/Resolving]
  - Jaundice [Not Recovered/Not Resolved]
  - Ischaemic hepatitis [Unknown]
  - Vein collapse [Unknown]
  - Thrombosis [Recovering/Resolving]
  - Heart rate increased [Recovered/Resolved]
  - Coagulopathy [Recovered/Resolved]
  - Unresponsive to stimuli [Recovered/Resolved]
  - Hypertension [Recovered/Resolved]
  - Hypotension [Recovered/Resolved]
  - Post procedural haemorrhage [Unknown]
  - Shock [Recovered/Resolved]
  - Blood magnesium decreased [Unknown]
  - Hepatic enzyme increased [Not Recovered/Not Resolved]
  - Contusion [Recovering/Resolving]

NARRATIVE: CASE EVENT DATE: 201802
